FAERS Safety Report 5863098-X (Version None)
Quarter: 2008Q3

REPORT INFORMATION
  Report Type: 
  Country: None (occurrence: None)
  Receive Date: 20080828
  Receipt Date: 20080821
  Transmission Date: 20090109
  Serious: Yes (Other)
  Sender: FDA-Public Use
  Company Number: US-CELGENEUS-163-20785-08081176

PATIENT
  Sex: Male

DRUGS (2)
  1. THALOMID [Suspect]
     Indication: MULTIPLE MYELOMA
     Route: 048
     Dates: start: 20041001
  2. THALOMID [Suspect]
     Dates: start: 20080328

REACTIONS (3)
  - CIRCULATORY COLLAPSE [None]
  - COGNITIVE DISORDER [None]
  - FATIGUE [None]
